FAERS Safety Report 10142177 (Version 1)
Quarter: 2014Q2

REPORT INFORMATION
  Report Type: Spontaneous
  Country: US (occurrence: US)
  Receive Date: 20140430
  Receipt Date: 20140430
  Transmission Date: 20141212
  Serious: No
  Sender: FDA-Public Use
  Company Number: US-SANOFI-AVENTIS-2013SA044811

PATIENT
  Age: 34 Year
  Sex: Female

DRUGS (5)
  1. CLOMID [Suspect]
     Route: 048
     Dates: start: 201109, end: 201110
  2. CLOMID [Suspect]
     Route: 048
     Dates: start: 201110
  3. FLEXERIL [Concomitant]
     Route: 048
  4. VITAMINS [Concomitant]
  5. COQ10 [Concomitant]

REACTIONS (3)
  - Muscle spasms [Recovered/Resolved]
  - Energy increased [Recovered/Resolved]
  - Visual impairment [Recovered/Resolved]
